FAERS Safety Report 12066057 (Version 2)
Quarter: 2017Q1

REPORT INFORMATION
  Report Type: Spontaneous
  Country: US (occurrence: US)
  Receive Date: 20160210
  Receipt Date: 20170209
  Transmission Date: 20170428
  Serious: No
  Sender: FDA-Public Use
  Company Number: US-ALLERGAN-1525972US

PATIENT
  Age: 45 Year
  Sex: Female

DRUGS (25)
  1. BOTOX COSMETIC [Suspect]
     Active Substance: ONABOTULINUMTOXINA
     Dosage: 25 UNITS, SINGLE
     Route: 030
     Dates: start: 20150826, end: 20150826
  2. BOTOX COSMETIC [Suspect]
     Active Substance: ONABOTULINUMTOXINA
     Dosage: 6.5 UNITS, SINGLE
     Route: 030
     Dates: start: 20150925, end: 20150925
  3. BOTOX COSMETIC [Suspect]
     Active Substance: ONABOTULINUMTOXINA
     Dosage: 15 UNITS, SINGLE
     Route: 030
     Dates: start: 20150327, end: 20150327
  4. BOTOX COSMETIC [Suspect]
     Active Substance: ONABOTULINUMTOXINA
     Dosage: 3.2 UNITS, SINGLE
     Route: 030
     Dates: start: 20150414, end: 20150414
  5. BOTOX COSMETIC [Suspect]
     Active Substance: ONABOTULINUMTOXINA
     Dosage: 10 UNITS, SINGLE
     Route: 030
     Dates: start: 20150609, end: 20150609
  6. BOTOX COSMETIC [Suspect]
     Active Substance: ONABOTULINUMTOXINA
     Dosage: 6.5 UNITS, SINGLE
     Route: 030
     Dates: start: 20150623, end: 20150623
  7. BOTOX COSMETIC [Suspect]
     Active Substance: ONABOTULINUMTOXINA
     Dosage: 15 UNITS, SINGLE
     Route: 030
     Dates: start: 20150908, end: 20150908
  8. BOTOX COSMETIC [Suspect]
     Active Substance: ONABOTULINUMTOXINA
     Dosage: 3.2 UNITS, SINGLE
     Route: 030
     Dates: start: 20150331, end: 20150331
  9. BOTOX COSMETIC [Suspect]
     Active Substance: ONABOTULINUMTOXINA
     Dosage: 6.5 UNITS, SINGLE
     Route: 030
     Dates: start: 20150407, end: 20150407
  10. BOTOX COSMETIC [Suspect]
     Active Substance: ONABOTULINUMTOXINA
     Dosage: 24.7 UNITS, SINGLE
     Route: 030
     Dates: start: 20150603, end: 20150603
  11. BOTOX COSMETIC [Suspect]
     Active Substance: ONABOTULINUMTOXINA
     Dosage: 20 UNITS, SINGLE
     Route: 030
     Dates: start: 20150603, end: 20150603
  12. BOTOX COSMETIC [Suspect]
     Active Substance: ONABOTULINUMTOXINA
     Dosage: 15 UNITS, SINGLE
     Route: 030
     Dates: start: 20150609, end: 20150609
  13. BOTOX COSMETIC [Suspect]
     Active Substance: ONABOTULINUMTOXINA
     Dosage: 6.5 UNITS, SINGLE
     Route: 030
     Dates: start: 20150925, end: 20150925
  14. BOTOX COSMETIC [Suspect]
     Active Substance: ONABOTULINUMTOXINA
     Dosage: 3.2 UNITS, SINGLE
     Route: 030
     Dates: start: 20150407, end: 20150407
  15. BOTOX COSMETIC [Suspect]
     Active Substance: ONABOTULINUMTOXINA
     Dosage: 15 UNITS, SINGLE
     Route: 030
     Dates: start: 20150826, end: 20150826
  16. BOTOX COSMETIC [Suspect]
     Active Substance: ONABOTULINUMTOXINA
     Indication: SKIN WRINKLING
     Dosage: 20 UNITS, SINGLE
     Route: 030
     Dates: start: 20150327, end: 20150327
  17. BOTOX COSMETIC [Suspect]
     Active Substance: ONABOTULINUMTOXINA
     Dosage: 3.2 UNITS, SINGLE
     Route: 030
     Dates: start: 20150331, end: 20150331
  18. BOTOX COSMETIC [Suspect]
     Active Substance: ONABOTULINUMTOXINA
     Dosage: 6.5 UNITS, SINGLE
     Route: 030
     Dates: start: 20150908, end: 20150908
  19. BOTOX COSMETIC [Suspect]
     Active Substance: ONABOTULINUMTOXINA
     Dosage: 6.5 UNITS, SINGLE
     Route: 030
     Dates: start: 20150623, end: 20150623
  20. BOTOX COSMETIC [Suspect]
     Active Substance: ONABOTULINUMTOXINA
     Dosage: 3.2 UNITS, SINGLE
     Route: 030
     Dates: start: 20150925, end: 20150925
  21. BOTOX COSMETIC [Suspect]
     Active Substance: ONABOTULINUMTOXINA
     Dosage: 15 UNITS, SINGLE
     Route: 030
     Dates: start: 20151012, end: 20151012
  22. BOTOX COSMETIC [Suspect]
     Active Substance: ONABOTULINUMTOXINA
     Dosage: 20 UNITS, SINGLE
     Route: 030
     Dates: start: 20151012, end: 20151012
  23. BOTOX COSMETIC [Suspect]
     Active Substance: ONABOTULINUMTOXINA
     Dosage: 15 UNITS, SINGLE
     Route: 030
     Dates: start: 20150327, end: 20150327
  24. BOTOX COSMETIC [Suspect]
     Active Substance: ONABOTULINUMTOXINA
     Dosage: 3.2 UNITS, SINGLE
     Route: 030
     Dates: start: 20150407, end: 20150407
  25. BOTOX COSMETIC [Suspect]
     Active Substance: ONABOTULINUMTOXINA
     Dosage: 3.2 UNITS, SINGLE
     Route: 030
     Dates: start: 20150501, end: 20150501

REACTIONS (1)
  - Drug ineffective [Unknown]
